FAERS Safety Report 5363564-X (Version None)
Quarter: 2007Q2

REPORT INFORMATION
  Report Type: 
  Country: None (occurrence: None)
  Receive Date: 20070620
  Receipt Date: 20070614
  Transmission Date: 20071010
  Serious: Yes (Hospitalization)
  Sender: FDA-Public Use
  Company Number: CA-ASTRAZENECA-2007UW14449

PATIENT
  Age: 76 Year
  Sex: Female

DRUGS (10)
  1. ARIMIDEX [Suspect]
     Indication: BREAST CANCER
     Route: 048
     Dates: start: 19990101
  2. LEVOTHYROXINE SODIUM [Concomitant]
     Indication: THYROIDECTOMY
  3. AMILORIDE HCL AND HYDROCHLOROTHIAZIDE [Concomitant]
     Dosage: 50/5 1 QD
  4. VITAMIN D [Concomitant]
  5. RISEDRONATE SODIUM [Concomitant]
  6. FENTANYL [Concomitant]
  7. ATORVASTATIN CALCIUM [Concomitant]
  8. PREDNISONE TAB [Concomitant]
  9. CELEXA [Concomitant]
  10. PERCOCET [Concomitant]

REACTIONS (3)
  - GAIT DISTURBANCE [None]
  - MUSCULAR WEAKNESS [None]
  - PARAESTHESIA [None]
